FAERS Safety Report 17150836 (Version 4)
Quarter: 2024Q2

REPORT INFORMATION
  Report Type: Report from Study
  Country: CA (occurrence: CA)
  Receive Date: 20191213
  Receipt Date: 20240624
  Transmission Date: 20240716
  Serious: Yes (Other)
  Sender: FDA-Public Use
  Company Number: CA-002147023-PHHY2016CA181758

PATIENT
  Age: 57 Year
  Sex: Female

DRUGS (18)
  1. XOLAIR [Suspect]
     Active Substance: OMALIZUMAB
     Indication: Asthma
     Route: 058
     Dates: start: 20161229
  2. XOLAIR [Suspect]
     Active Substance: OMALIZUMAB
     Route: 058
     Dates: start: 20191119
  3. XOLAIR [Suspect]
     Active Substance: OMALIZUMAB
     Dosage: UNK
     Route: 058
     Dates: start: 20170407
  4. XOLAIR [Suspect]
     Active Substance: OMALIZUMAB
     Dosage: UNK
     Route: 058
     Dates: start: 20170519
  5. XOLAIR [Suspect]
     Active Substance: OMALIZUMAB
     Dosage: UNK
     Route: 058
     Dates: start: 20170519
  6. XOLAIR [Suspect]
     Active Substance: OMALIZUMAB
     Dosage: UNK
     Route: 058
     Dates: start: 20170602
  7. XOLAIR [Suspect]
     Active Substance: OMALIZUMAB
     Dosage: UNK
     Route: 058
     Dates: start: 20171123
  8. XOLAIR [Suspect]
     Active Substance: OMALIZUMAB
     Dosage: UNK
     Route: 058
     Dates: start: 20180118
  9. XOLAIR [Suspect]
     Active Substance: OMALIZUMAB
     Dosage: 225 MG, BIW
     Route: 058
     Dates: start: 20180724
  10. XOLAIR [Suspect]
     Active Substance: OMALIZUMAB
     Dosage: UNK
     Route: 058
  11. XOLAIR [Suspect]
     Active Substance: OMALIZUMAB
     Route: 058
     Dates: end: 202008
  12. XOLAIR [Suspect]
     Active Substance: OMALIZUMAB
     Route: 058
  13. GLYCOPYRROLATE [Concomitant]
     Active Substance: GLYCOPYRROLATE
     Indication: Asthma
     Route: 055
  14. ZENHALE [Concomitant]
     Active Substance: FORMOTEROL FUMARATE\MOMETASONE FUROATE
     Indication: Asthma
     Route: 042
  15. SINGULAIR [Concomitant]
     Active Substance: MONTELUKAST SODIUM
     Indication: Asthma
     Route: 048
  16. CORTISONE [Concomitant]
     Active Substance: CORTISONE
  17. PREDNISONE [Concomitant]
     Active Substance: PREDNISONE
     Indication: Vertigo
     Route: 065
  18. PREDNISONE [Concomitant]
     Active Substance: PREDNISONE
     Indication: Ear disorder

REACTIONS (18)
  - Deafness bilateral [Unknown]
  - Pneumonia [Unknown]
  - Ear infection [Unknown]
  - Inner ear inflammation [Unknown]
  - Sleep disorder [Unknown]
  - Influenza [Unknown]
  - Dyspnoea [Unknown]
  - Productive cough [Unknown]
  - Secretion discharge [Unknown]
  - Ear disorder [Unknown]
  - Vertigo [Unknown]
  - Dizziness [Unknown]
  - Sinusitis [Unknown]
  - Headache [Unknown]
  - Fatigue [Unknown]
  - Asthma [Unknown]
  - Nasal discharge discolouration [Unknown]
  - Urticaria [Unknown]

NARRATIVE: CASE EVENT DATE: 20161229
